FAERS Safety Report 7643681-1 (Version None)
Quarter: 2011Q3

REPORT INFORMATION
  Report Type: 
  Country: None (occurrence: None)
  Receive Date: 20110729
  Receipt Date: 20110721
  Transmission Date: 20111222
  Serious: Yes (Other)
  Sender: FDA-Public Use
  Company Number: FR-ASTELLAS-2011US004196

PATIENT
  Sex: Male

DRUGS (1)
  1. AMBISOME [Suspect]
     Indication: ASPERGILLOSIS
     Dosage: 300 MG, 2XWEEKLY
     Route: 042

REACTIONS (3)
  - HISTIOCYTOSIS HAEMATOPHAGIC [None]
  - SPLENOMEGALY [None]
  - NEOPLASM PROGRESSION [None]
